FAERS Safety Report 8010234-5 (Version None)
Quarter: 2011Q4

REPORT INFORMATION
  Report Type: 
  Country: None (occurrence: None)
  Receive Date: 20111228
  Receipt Date: 20111223
  Transmission Date: 20120403
  Serious: Yes (Hospitalization)
  Sender: FDA-Public Use
  Company Number: US-JNJFOC-20101104243

PATIENT
  Sex: Male

DRUGS (5)
  1. WELCHOL [Concomitant]
  2. ASPIRIN [Concomitant]
  3. CRESTOR [Concomitant]
     Dates: start: 20080101
  4. STELARA [Suspect]
     Indication: PSORIASIS
     Route: 058
     Dates: start: 20101029
  5. NIASPAN [Concomitant]

REACTIONS (7)
  - VISION BLURRED [None]
  - DIPLOPIA [None]
  - BACK PAIN [None]
  - HEADACHE [None]
  - HYPERTENSION [None]
  - ALTERED VISUAL DEPTH PERCEPTION [None]
  - ATAXIA [None]
